FAERS Safety Report 6107049-1 (Version None)
Quarter: 2009Q1

REPORT INFORMATION
  Report Type: 
  Country: None (occurrence: None)
  Receive Date: 20090305
  Receipt Date: 20090305
  Transmission Date: 20090719
  Serious: Yes (Other)
  Sender: FDA-Public Use
  Company Number: None

PATIENT
  Age: 52 Year
  Sex: Female
  Weight: 52.1637 kg

DRUGS (1)
  1. LEVOFLOXACIN [Suspect]
     Indication: SINUS OPERATION
     Dosage: 500 MG 1 A DAY MOUTH
     Route: 048
     Dates: start: 20090212, end: 20090221

REACTIONS (4)
  - ARTHRALGIA [None]
  - JOINT SWELLING [None]
  - MYALGIA [None]
  - PRURITUS [None]
